FAERS Safety Report 17072157 (Version 4)
Quarter: 2020Q1

REPORT INFORMATION
  Report Type: Spontaneous
  Country: FR (occurrence: FR)
  Receive Date: 20191125
  Receipt Date: 20200205
  Transmission Date: 20200409
  Serious: Yes (Death, Hospitalization, Other)
  Sender: FDA-Public Use
  Company Number: FR-009507513-1911FRA006864

PATIENT
  Age: 38 Year
  Sex: Female

DRUGS (2)
  1. BETAMETHASONE VALERATE. [Suspect]
     Active Substance: BETAMETHASONE VALERATE
     Indication: PRURITUS
     Dosage: 20 TUBES A MONTH OR 600 GRAMS PER MONTH OR 7.2 KG PER YEAR
     Route: 061
  2. METHOTREXATE. [Suspect]
     Active Substance: METHOTREXATE
     Indication: RHEUMATOID ARTHRITIS
     Dosage: 10 MILLIGRAM, QW

REACTIONS (14)
  - Septic shock [Fatal]
  - Skin atrophy [Fatal]
  - Drug abuse [Unknown]
  - Fall [Fatal]
  - Wound necrosis [Fatal]
  - Cushing^s syndrome [Fatal]
  - Intertrigo [Fatal]
  - Netherton^s syndrome [Fatal]
  - Adrenal insufficiency [Fatal]
  - Renal failure [Fatal]
  - Adrenocorticotropic hormone deficiency [Fatal]
  - Fibula fracture [Fatal]
  - Multiple organ dysfunction syndrome [Fatal]
  - Osteoporosis [Fatal]
